FAERS Safety Report 6543780-1 (Version None)
Quarter: 2010Q1

REPORT INFORMATION
  Report Type: 
  Country: None (occurrence: None)
  Receive Date: 20100120
  Receipt Date: 20090625
  Transmission Date: 20100710
  Serious: No
  Sender: FDA-Public Use
  Company Number: US-BRISTOL-MYERS SQUIBB COMPANY-14680847

PATIENT
  Sex: Male

DRUGS (2)
  1. CISPLATIN [Suspect]
  2. ALIMTA [Suspect]

REACTIONS (1)
  - THROMBOSIS [None]
